FAERS Safety Report 11934246 (Version 1)
Quarter: 2016Q1

REPORT INFORMATION
  Report Type: Spontaneous
  Country: US (occurrence: US)
  Receive Date: 20160121
  Receipt Date: 20160121
  Transmission Date: 20160526
  Serious: No
  Sender: FDA-Public Use
  Company Number: US-PERRIGO-15US004265

PATIENT
  Age: 68 Year
  Sex: Female

DRUGS (2)
  1. ACETAMINOPHEN-ASPIRIN-CAFFEINE 6X0 [Suspect]
     Active Substance: ACETAMINOPHEN\ASPIRIN\CAFFEINE
     Indication: MYALGIA
  2. ACETAMINOPHEN-ASPIRIN-CAFFEINE 6X0 [Suspect]
     Active Substance: ACETAMINOPHEN\ASPIRIN\CAFFEINE
     Indication: ARTHRITIS
     Dosage: ONE TABLET, EVERY SIX HOURS
     Route: 048
     Dates: start: 201502, end: 2015

REACTIONS (3)
  - Abdominal discomfort [Recovered/Resolved]
  - Drug ineffective [Unknown]
  - Underdose [Recovered/Resolved]

NARRATIVE: CASE EVENT DATE: 201502
